FAERS Safety Report 5293937-5 (Version None)
Quarter: 2007Q2

REPORT INFORMATION
  Report Type: 
  Country: None (occurrence: None)
  Receive Date: 20070405
  Receipt Date: 20070326
  Transmission Date: 20071010
  Serious: Yes (Hospitalization)
  Sender: FDA-Public Use
  Company Number: 2007PV032382

PATIENT
  Age: 63 Year
  Sex: Male

DRUGS (1)
  1. BYETTA [Suspect]
     Indication: DRUG USE FOR UNKNOWN INDICATION
     Dosage: SEE IMAGE
     Route: 058
     Dates: start: 20060701

REACTIONS (8)
  - CORONARY ARTERIAL STENT INSERTION [None]
  - DIZZINESS POSTURAL [None]
  - INCORRECT DOSE ADMINISTERED [None]
  - INJECTION SITE IRRITATION [None]
  - INSOMNIA [None]
  - NAUSEA [None]
  - ORTHOSTATIC HYPOTENSION [None]
  - PHARMACEUTICAL PRODUCT COMPLAINT [None]
